FAERS Safety Report 6238048-7 (Version None)
Quarter: 2009Q2

REPORT INFORMATION
  Report Type: 
  Country: None (occurrence: None)
  Receive Date: 20090622
  Receipt Date: 20090615
  Transmission Date: 20091009
  Serious: Yes (Hospitalization)
  Sender: FDA-Public Use
  Company Number: US-ASTRAZENECA-2009UW15170

PATIENT
  Sex: Female

DRUGS (5)
  1. NEXIUM [Suspect]
     Route: 048
  2. PENICILLIN [Suspect]
  3. PROTONIX [Suspect]
  4. VALIUM [Suspect]
  5. MORPHINE [Suspect]

REACTIONS (1)
  - DRUG HYPERSENSITIVITY [None]
